FAERS Safety Report 4427774-8 (Version None)
Quarter: 2004Q3

REPORT INFORMATION
  Report Type: 
  Country: None (occurrence: None)
  Receive Date: 20040816
  Receipt Date: 20040803
  Transmission Date: 20050211
  Serious: Yes (Other)
  Sender: FDA-Public Use
  Company Number: 2004052494

PATIENT
  Age: 50 Year
  Sex: Female
  Weight: 58.9676 kg

DRUGS (6)
  1. LIPITOR [Suspect]
     Indication: BLOOD CHOLESTEROL INCREASED
     Dosage: 20 MG (20 MG, 1 IN 1 D), ORAL
     Route: 048
     Dates: start: 19970101
  2. IMATINIB MESILATE (IMATINIB MESILATE) [Suspect]
     Indication: NEOPLASM
     Dosage: 600 MG (600 MG, 1 IN 1 D), UNKNOWN
     Route: 065
     Dates: start: 20030201
  3. DYAZIDE [Concomitant]
  4. LANSOPRAZOLE [Concomitant]
  5. PROMETHAZINE [Concomitant]
  6. GLYCOPYRRONIUM BROMIDE (GLYCOPYRRONIUM BROMIDE) [Concomitant]

REACTIONS (4)
  - DRUG INEFFECTIVE [None]
  - MALAISE [None]
  - METASTASIS [None]
  - SARCOMA [None]
